FAERS Safety Report 9913425 (Version 1)
Quarter: 2014Q1

REPORT INFORMATION
  Report Type: Spontaneous
  Country: US (occurrence: None)
  Receive Date: 20140218
  Receipt Date: 20140218
  Transmission Date: 20141002
  Serious: Yes (Other)
  Sender: FDA-Public Use
  Company Number: None

PATIENT
  Sex: Male
  Weight: 90.72 kg

DRUGS (1)
  1. DULOXETINE [Suspect]
     Indication: PAIN
     Route: 048
     Dates: start: 20140116

REACTIONS (4)
  - Pain [None]
  - Irritability [None]
  - Depression [None]
  - Product substitution issue [None]
